FAERS Safety Report 10501771 (Version 2)
Quarter: 2014Q4

REPORT INFORMATION
  Report Type: Spontaneous
  Country: BR (occurrence: BR)
  Receive Date: 20141007
  Receipt Date: 20141007
  Transmission Date: 20150528
  Serious: Yes (Death)
  Sender: FDA-Public Use
  Company Number: BR-PFIZER INC-2013318603

PATIENT
  Sex: Male

DRUGS (5)
  1. SUTENT [Suspect]
     Active Substance: SUNITINIB MALATE
     Indication: RENAL CANCER
     Dosage: 50 MG (ONE CAPSULE), 1X/DAY
     Route: 048
     Dates: start: 20131008
  2. CAPTOPRIL. [Concomitant]
     Active Substance: CAPTOPRIL
     Dosage: UNK
  3. METFORMIN [Concomitant]
     Active Substance: METFORMIN HYDROCHLORIDE
     Dosage: UNK
  4. CAPOTEN [Concomitant]
     Active Substance: CAPTOPRIL
     Dosage: UNK
  5. FERROUS SULFATE [Concomitant]
     Active Substance: FERROUS SULFATE\FERROUS SULFATE, DRIED
     Dosage: UNK

REACTIONS (13)
  - Mouth injury [Unknown]
  - Disease progression [Fatal]
  - Respiratory failure [Fatal]
  - Pruritus [Unknown]
  - Scrotal irritation [Unknown]
  - Pain in extremity [Unknown]
  - Renal cancer [Fatal]
  - Diarrhoea [Unknown]
  - Rash erythematous [Unknown]
  - Nasal discomfort [Unknown]
  - Oropharyngeal pain [Unknown]
  - Blister [Unknown]
  - Face injury [Unknown]

NARRATIVE: CASE EVENT DATE: 2013
